FAERS Safety Report 15857565 (Version 2)
Quarter: 2019Q1

REPORT INFORMATION
  Report Type: Report from Study
  Country: None (occurrence: TR)
  Receive Date: 20190123
  Receipt Date: 20190201
  Transmission Date: 20190417
  Serious: Yes (Hospitalization)
  Sender: FDA-Public Use
  Company Number: TR-ABBVIE-19S-161-2634423-00

PATIENT
  Age: 74 Year
  Sex: Male
  Weight: 75 kg

DRUGS (10)
  1. DUODOPA [Suspect]
     Active Substance: CARBIDOPA\LEVODOPA
     Indication: PARKINSON^S DISEASE
     Dosage: MD(ML): 9.80 CD(ML): 4.00 ED(ML): 1.00
     Route: 050
     Dates: start: 20190116, end: 20190123
  2. RASALAS [Concomitant]
     Indication: PARKINSON^S DISEASE
     Route: 048
  3. SEROQUEL [Concomitant]
     Active Substance: QUETIAPINE FUMARATE
     Indication: PARKINSON^S DISEASE
     Route: 048
  4. PK-MERZ [Concomitant]
     Active Substance: AMANTADINE
     Indication: PARKINSON^S DISEASE
     Route: 048
  5. DUODOPA [Suspect]
     Active Substance: CARBIDOPA\LEVODOPA
     Dosage: MD (ML): 9.80,CD (ML): 4.30, ED(ML): 1.00
     Route: 050
     Dates: start: 20190123, end: 20190128
  6. DUODOPA [Suspect]
     Active Substance: CARBIDOPA\LEVODOPA
     Dosage: MD (ML): 11.00, CD (ML): 4.70, ED (ML): 1,00
     Route: 050
     Dates: start: 20190129
  7. DUODOPA [Suspect]
     Active Substance: CARBIDOPA\LEVODOPA
     Dosage: MD (ML): 10.80,CD (ML): 4.50,ED (ML): 1.00
     Route: 050
     Dates: start: 20190128, end: 20190129
  8. SECITA [Concomitant]
     Indication: DEPRESSION
     Route: 048
  9. DESYREL [Concomitant]
     Active Substance: TRAZODONE HYDROCHLORIDE
     Indication: SLEEP DISORDER
     Route: 048
  10. LEVODOPA+CARBIDOPA ( DOPADEX SR) (NON-ABBVIE) [Concomitant]
     Indication: PARKINSON^S DISEASE
     Route: 048

REACTIONS (1)
  - Hypotension [Recovered/Resolved]

NARRATIVE: CASE EVENT DATE: 20190121
